FAERS Safety Report 6746001-X (Version None)
Quarter: 2010Q2

REPORT INFORMATION
  Report Type: 
  Country: None (occurrence: None)
  Receive Date: 20100528
  Receipt Date: 20100520
  Transmission Date: 20101027
  Serious: Yes (Other)
  Sender: FDA-Public Use
  Company Number: JP-PFIZER INC-2010064515

PATIENT
  Age: 82 Year
  Sex: Female

DRUGS (15)
  1. NORVASC [Suspect]
     Indication: HYPERTENSION
     Dosage: 5MG, DAILY
     Route: 048
     Dates: start: 19970101, end: 20090818
  2. NORVASC [Suspect]
     Dosage: 2.5 MG, DAILY
     Dates: start: 20090819
  3. HALCION [Suspect]
     Indication: INSOMNIA
     Route: 048
  4. NU LOTAN [Suspect]
  5. NATRIX [Concomitant]
     Dosage: UNK
     Route: 048
  6. CYANOCOBALAMIN [Concomitant]
     Dosage: UNK
     Route: 048
  7. GASTER OD [Concomitant]
     Dosage: UNK
     Route: 048
  8. LENDORMIN [Concomitant]
     Indication: INSOMNIA
     Route: 048
  9. MYSLEE [Concomitant]
     Indication: INSOMNIA
     Route: 048
  10. DORAL [Concomitant]
     Indication: INSOMNIA
     Route: 048
  11. VOGLIBOSE [Concomitant]
     Indication: DIABETES MELLITUS
     Dosage: UNK
     Route: 048
  12. AMARYL [Concomitant]
     Indication: DIABETES MELLITUS
     Route: 048
  13. FEMARA [Concomitant]
     Dosage: UNK
     Route: 048
  14. RIVOTRIL [Concomitant]
     Indication: INSOMNIA
  15. KETOPROFEN [Concomitant]
     Dosage: UNK
     Route: 062

REACTIONS (3)
  - APHASIA [None]
  - HEADACHE [None]
  - TINNITUS [None]
